FAERS Safety Report 5252574-9 (Version None)
Quarter: 2007Q1

REPORT INFORMATION
  Report Type: 
  Country: None (occurrence: None)
  Receive Date: 20070301
  Receipt Date: 20070221
  Transmission Date: 20070707
  Serious: Yes (Hospitalization)
  Sender: FDA-Public Use
  Company Number: FR-BAYER-200710133BFR

PATIENT
  Age: 70 Year
  Sex: Male
  Weight: 67 kg

DRUGS (3)
  1. CIPROFLOXACIN [Suspect]
     Indication: UNEVALUABLE EVENT
     Dosage: TOTAL DAILY DOSE: 800 MG  UNIT DOSE: 200 MG
     Route: 042
     Dates: start: 20061111, end: 20061115
  2. TAZOCILLINE [Suspect]
     Indication: UNEVALUABLE EVENT
     Dosage: TOTAL DAILY DOSE: 12 G
     Route: 042
     Dates: start: 20061106, end: 20061110
  3. TRIFLUCAN [Suspect]
     Indication: UNEVALUABLE EVENT
     Dosage: TOTAL DAILY DOSE: 400 MG
     Route: 042
     Dates: start: 20061106, end: 20061109

REACTIONS (2)
  - ANAEMIA [None]
  - NEUTROPENIA [None]
